FAERS Safety Report 7758881-X (Version None)
Quarter: 2011Q3

REPORT INFORMATION
  Report Type: 
  Country: None (occurrence: None)
  Receive Date: 20110919
  Receipt Date: 20110914
  Transmission Date: 20111222
  Serious: Yes (Hospitalization)
  Sender: FDA-Public Use
  Company Number: US-ABBOTT-11P-163-0854815-00

PATIENT
  Sex: Female
  Weight: 54.48 kg

DRUGS (3)
  1. HUMIRA [Suspect]
     Indication: CROHN'S DISEASE
     Route: 058
     Dates: start: 20100901, end: 20110301
  2. HUMIRA [Suspect]
     Route: 058
     Dates: start: 20110801
  3. FERROUS SULFATE TAB [Concomitant]
     Indication: MINERAL SUPPLEMENTATION

REACTIONS (4)
  - INTESTINAL OBSTRUCTION [None]
  - FISTULA [None]
  - ANAEMIA [None]
  - ABSCESS [None]
